FAERS Safety Report 4823691-X (Version None)
Quarter: 2005Q4

REPORT INFORMATION
  Report Type: 
  Country: None (occurrence: None)
  Receive Date: 20051107
  Receipt Date: 20051026
  Transmission Date: 20060501
  Serious: Yes (Hospitalization)
  Sender: FDA-Public Use
  Company Number: 2005148813

PATIENT
  Age: 68 Year
  Sex: Female

DRUGS (12)
  1. ALDACTONE [Suspect]
     Indication: ILL-DEFINED DISORDER
     Dosage: 25 MG (1 IN 24 HR), ORAL
     Route: 048
  2. LASIX [Concomitant]
  3. PREDNISONE [Concomitant]
  4. WARFARIN SODIUM [Concomitant]
  5. LOCHOL (FLUVASTATIN SODIUM) [Concomitant]
  6. AZELASTINE HYDROCHLORIDE (AZELASTINE HYDROCHLORIDE) [Concomitant]
  7. BISOLVON (BROMHEXINE HYDROCHLORIDE) [Concomitant]
  8. VALERIN (VALPROATE SODIUM) [Concomitant]
  9. PROCATEROL HCL [Concomitant]
  10. SELBEX (TEPRENONE) [Concomitant]
  11. CIMETIDINE [Concomitant]
  12. HERBAL PREPARATION (HERBAL PREPARATION) [Concomitant]

REACTIONS (1)
  - BLOOD ALKALINE PHOSPHATASE INCREASED [None]
